FAERS Safety Report 12706738 (Version 2)
Quarter: 2017Q1

REPORT INFORMATION
  Report Type: Spontaneous
  Country: US (occurrence: US)
  Receive Date: 20160901
  Receipt Date: 20170215
  Transmission Date: 20170428
  Serious: Yes (Hospitalization, Other)
  Sender: FDA-Public Use
  Company Number: US-DRREDDYS-USA/USA/16/0082655

PATIENT
  Age: 52 Year
  Sex: Female

DRUGS (3)
  1. HYPERICUM [Concomitant]
     Active Substance: ST. JOHN^S WORT
     Indication: DEPRESSION
     Route: 065
  2. VENLAFAXINE HYDROCHLORIDE. [Suspect]
     Active Substance: VENLAFAXINE HYDROCHLORIDE
     Indication: DEPRESSION
     Route: 065
  3. APIUM GRAVEOLENS [Interacting]
     Active Substance: CELERY SEED
     Indication: MENOPAUSAL DISORDER
     Route: 065

REACTIONS (3)
  - Bipolar disorder [Recovered/Resolved]
  - Antipsychotic drug level increased [Unknown]
  - Drug interaction [Unknown]
